FAERS Safety Report 13219409 (Version 2)
Quarter: 2017Q1

REPORT INFORMATION
  Report Type: Spontaneous
  Country: US (occurrence: US)
  Receive Date: 20170210
  Receipt Date: 20170330
  Transmission Date: 20170428
  Serious: No
  Sender: FDA-Public Use
  Company Number: US-ASTRAZENECA-2017SE12382

PATIENT
  Age: 67 Year
  Sex: Male
  Weight: 83.9 kg

DRUGS (9)
  1. ASPIRIN. [Concomitant]
     Active Substance: ASPIRIN
     Indication: MYOCARDIAL INFARCTION
     Route: 048
  2. CLOPIDOGREL [Concomitant]
     Active Substance: CLOPIDOGREL BISULFATE
     Indication: ANTICOAGULANT THERAPY
     Route: 048
  3. METOPROLOL. [Suspect]
     Active Substance: METOPROLOL
     Indication: CARDIAC DISORDER
     Route: 048
  4. SPIRIVA [Concomitant]
     Active Substance: TIOTROPIUM BROMIDE MONOHYDRATE
     Indication: DYSPNOEA
     Dosage: 2 SPRAYS DAILY
     Route: 055
  5. SYMBICORT [Suspect]
     Active Substance: BUDESONIDE\FORMOTEROL FUMARATE DIHYDRATE
     Indication: CHRONIC OBSTRUCTIVE PULMONARY DISEASE
     Dosage: 80/4.5 MCG, ONE PUFF  TWO TIMES A DAY
     Route: 055
  6. VENTOLIN [Concomitant]
     Active Substance: ALBUTEROL SULFATE
     Indication: DRUG THERAPY
     Dosage: 2 PUFF, AS NEEDED
     Route: 055
  7. AMITRIPTYLINE [Concomitant]
     Active Substance: AMITRIPTYLINE
     Indication: DEPRESSION
     Route: 048
  8. SERTRALINE [Concomitant]
     Active Substance: SERTRALINE HYDROCHLORIDE
     Indication: PANIC ATTACK
     Route: 048
  9. ATORVASTATIN [Concomitant]
     Active Substance: ATORVASTATIN
     Indication: BLOOD CHOLESTEROL ABNORMAL
     Route: 048

REACTIONS (9)
  - Arachnoid cyst [Unknown]
  - Device issue [Unknown]
  - Intentional product misuse [Unknown]
  - Dyspnoea [Unknown]
  - Confusional state [Unknown]
  - Arthritis [Unknown]
  - Device failure [Unknown]
  - Drug dose omission [Unknown]
  - Off label use [Unknown]

NARRATIVE: CASE EVENT DATE: 2016
